FAERS Safety Report 16186654 (Version 3)
Quarter: 2019Q4

REPORT INFORMATION
  Report Type: Report from Study
  Country: IT (occurrence: IT)
  Receive Date: 20190411
  Receipt Date: 20191127
  Transmission Date: 20200122
  Serious: Yes (Other)
  Sender: FDA-Public Use
  Company Number: IT-GLAXOSMITHKLINE-IT2019GSK064475

PATIENT
  Age: 65 Year
  Sex: Male
  Weight: 59 kg

DRUGS (10)
  1. MEPOLIZUMAB [Suspect]
     Active Substance: MEPOLIZUMAB
     Indication: ASTHMA
     Dosage: 100 MG, UNK
     Route: 058
     Dates: start: 20190128
  2. SALMETEROL [Concomitant]
     Active Substance: SALMETEROL
     Dosage: UNK
     Dates: start: 20190514, end: 20190620
  3. ALVESCO [Concomitant]
     Active Substance: CICLESONIDE
     Dosage: 160 UG, TID
     Dates: start: 20181002, end: 20181020
  4. SALMETEROL [Concomitant]
     Active Substance: SALMETEROL
     Indication: ASTHMA
     Dosage: UNK
     Dates: start: 20181002, end: 20181020
  5. ALVESCO [Concomitant]
     Active Substance: CICLESONIDE
     Dosage: 160 UG, BID
     Dates: start: 20190514, end: 20190620
  6. ALVESCO [Concomitant]
     Active Substance: CICLESONIDE
     Indication: ASTHMA
     Dosage: 80 UG, BID
     Dates: start: 2018, end: 20181001
  7. SEREVENT DISKUS [Concomitant]
     Active Substance: SALMETEROL XINAFOATE
     Indication: ASTHMA
     Dosage: UNK
     Dates: start: 20181011
  8. ALVESCO [Concomitant]
     Active Substance: CICLESONIDE
     Dosage: 80 UG, BID
     Dates: start: 20181021, end: 20190512
  9. ALVESCO [Concomitant]
     Active Substance: CICLESONIDE
     Dosage: 80 UG, BID
     Dates: start: 20190923
  10. DEXAMETHASONE. [Concomitant]
     Active Substance: DEXAMETHASONE
     Indication: ASTHMA
     Dosage: UNK, ONCE
     Dates: start: 20181002, end: 20181120

REACTIONS (1)
  - Pneumonia [Recovered/Resolved]

NARRATIVE: CASE EVENT DATE: 20190328
